FAERS Safety Report 9244867 (Version 1)
Quarter: 2013Q2

REPORT INFORMATION
  Report Type: Spontaneous
  Country: US (occurrence: US)
  Receive Date: 20130422
  Receipt Date: 20130422
  Transmission Date: 20140414
  Serious: Yes (Other)
  Sender: FDA-Public Use
  Company Number: US-PFIZER INC-2013122749

PATIENT
  Age: 63 Year
  Sex: Male
  Weight: 62 kg

DRUGS (5)
  1. XANAX [Concomitant]
     Indication: ANXIETY
     Dosage: UNK
  2. LYRICA [Suspect]
     Indication: NEUROPATHY PERIPHERAL
     Dosage: 150 MG, 2X/DAY
  3. LYRICA [Suspect]
     Dosage: 300 MG, (AT NIGHT BY TAKING TWO CAPSULES OF 150MG)
  4. LYRICA [Suspect]
     Dosage: 450 MG, 1X/DAY  (AT NIGHT BY TAKING THREE CAPSULES OF 150MG AT A TIME)
  5. NEURONTIN [Suspect]
     Dosage: UNK

REACTIONS (8)
  - Cognitive disorder [Unknown]
  - Middle insomnia [Unknown]
  - Dizziness [Unknown]
  - Somnolence [Unknown]
  - Hangover [Unknown]
  - Breakthrough pain [Unknown]
  - Pain [Unknown]
  - Drug ineffective [Unknown]
